FAERS Safety Report 11203210 (Version 1)
Quarter: 2015Q2

REPORT INFORMATION
  Report Type: Report from Study
  Country: US (occurrence: US)
  Receive Date: 20150619
  Receipt Date: 20150619
  Transmission Date: 20150821
  Serious: Yes (Hospitalization)
  Sender: FDA-Public Use
  Company Number: US-PFIZER INC-HQWYE144618MAR03

PATIENT
  Age: 51 Year
  Sex: Female
  Weight: 51 kg

DRUGS (9)
  1. MULTIVITAMINS [Concomitant]
     Active Substance: VITAMINS
     Dosage: UNK
     Dates: start: 19850101
  2. BUMEX [Concomitant]
     Active Substance: BUMETANIDE
     Dosage: UNK
     Dates: start: 19970101
  3. CALCIUM CARBONATE/VITAMIN D [Concomitant]
     Active Substance: CALCIUM CARBONATE\VITAMIN D
     Dosage: UNK
     Route: 065
     Dates: start: 20021103
  4. PREVACID [Concomitant]
     Active Substance: LANSOPRAZOLE
     Dosage: UNK
     Dates: start: 19980101
  5. AMBIEN [Concomitant]
     Active Substance: ZOLPIDEM TARTRATE
     Dosage: UNK
     Dates: start: 20000101
  6. BAZEDOXIFENE ACETATE/EQUILIN SULFATE SODIUM/ESTRONE SODIUM SULFATE [Suspect]
     Active Substance: BAZEDOXIFENE ACETATE\ESTROGENS, CONJUGATED
     Indication: MENOPAUSE
  7. BAZEDOXIFENE ACETATE/EQUILIN SULFATE SODIUM/ESTRONE SODIUM SULFATE [Suspect]
     Active Substance: BAZEDOXIFENE ACETATE\ESTROGENS, CONJUGATED
     Indication: HORMONE REPLACEMENT THERAPY
     Dosage: 1 DF, 1X/DAY
     Route: 048
     Dates: start: 20020729
  8. XANAX [Concomitant]
     Active Substance: ALPRAZOLAM
     Dosage: UNK
  9. ZYRTEC [Concomitant]
     Active Substance: CETIRIZINE HYDROCHLORIDE
     Dosage: UNK
     Dates: start: 19970101

REACTIONS (2)
  - Gallbladder disorder [Recovered/Resolved]
  - Condition aggravated [Recovered/Resolved]

NARRATIVE: CASE EVENT DATE: 20021202
